FAERS Safety Report 9156890 (Version 1)
Quarter: 2013Q1

REPORT INFORMATION
  Report Type: Spontaneous
  Country: US (occurrence: None)
  Receive Date: 20130308
  Receipt Date: 20130308
  Transmission Date: 20140127
  Serious: Yes (Hospitalization)
  Sender: FDA-Public Use
  Company Number: None

PATIENT
  Age: 66 Year
  Sex: Male
  Weight: 108.1 kg

DRUGS (3)
  1. DABIGATRAN [Suspect]
     Indication: ATRIAL FIBRILLATION
     Dosage: 150 GM  BID  PO
     Route: 048
     Dates: start: 20120312, end: 20120727
  2. DABIGATRAN [Suspect]
     Dosage: 150 GM  BID  PO
     Route: 048
     Dates: start: 20120312, end: 20120727
  3. ASPIRIN [Suspect]
     Indication: CORONARY ARTERIAL STENT INSERTION
     Dosage: 81 MG  EVERY DAY  PO
     Route: 048
     Dates: start: 20040901

REACTIONS (1)
  - Gastric haemorrhage [None]
